FAERS Safety Report 24678012 (Version 4)
Quarter: 2025Q1

REPORT INFORMATION
  Report Type: Spontaneous
  Country: EG (occurrence: EG)
  Receive Date: 20241129
  Receipt Date: 20250113
  Transmission Date: 20250408
  Serious: Yes (Other)
  Sender: BIOGEN
  Company Number: EG-BIOGEN-2024BI01266757

PATIENT
  Age: 25 Year
  Sex: Female
  Weight: 62 kg

DRUGS (9)
  1. TYSABRI [Suspect]
     Active Substance: NATALIZUMAB
     Indication: Multiple sclerosis
     Dosage: 300MG/15ML, EVERY 1 - 1.5 MONTHS
     Route: 050
     Dates: start: 202301, end: 202311
  2. TYSABRI [Suspect]
     Active Substance: NATALIZUMAB
     Dosage: 300MG/15ML, EVERY 1 - 1.5 MONTHS
     Route: 050
     Dates: start: 202311
  3. TYSABRI [Suspect]
     Active Substance: NATALIZUMAB
     Dosage: 300MG/15ML FROM JAN TO NOV-2023 THEN EVERY 45 DAYS
     Route: 050
     Dates: start: 202301
  4. CALCIUM [Concomitant]
     Active Substance: CALCIUM
     Indication: Vitamin supplementation
     Route: 050
  5. Amigran [Concomitant]
     Indication: Depression
     Route: 050
  6. URIPAN [Concomitant]
     Indication: Urinary incontinence
     Route: 050
  7. AMYDRAMINE [Concomitant]
     Indication: Depression
     Route: 050
  8. FOLIC ACID [Concomitant]
     Active Substance: FOLIC ACID
     Indication: Product used for unknown indication
     Route: 050
  9. Solupred [Concomitant]
     Indication: Prophylaxis
     Route: 050

REACTIONS (4)
  - Caesarean section [Recovered/Resolved]
  - Maternal exposure during pregnancy [Recovered/Resolved]
  - Anaemia of pregnancy [Recovered/Resolved]
  - Malnutrition [Unknown]

NARRATIVE: CASE EVENT DATE: 20231101
